FAERS Safety Report 7213930-2 (Version None)
Quarter: 2011Q1

REPORT INFORMATION
  Report Type: 
  Country: None (occurrence: None)
  Receive Date: 20110106
  Receipt Date: 20101230
  Transmission Date: 20110831
  Serious: Yes (Other)
  Sender: FDA-Public Use
  Company Number: US-ABBOTT-11P-163-0694987-00

PATIENT
  Sex: Female
  Weight: 101.24 kg

DRUGS (7)
  1. VITAMIN D [Concomitant]
  2. HUMIRA [Suspect]
     Indication: RHEUMATOID ARTHRITIS
     Dates: start: 20100810, end: 20101101
  3. HUMIRA [Suspect]
     Dates: start: 20101216, end: 20101216
  4. FOSAMAX [Concomitant]
     Indication: PRODUCT USED FOR UNKNOWN INDICATION
  5. CALCIUM [Concomitant]
     Indication: PRODUCT USED FOR UNKNOWN INDICATION
  6. VITAMIN D [Concomitant]
     Indication: PRODUCT USED FOR UNKNOWN INDICATION
  7. HUMIRA [Suspect]
     Dates: end: 20100601

REACTIONS (17)
  - SKIN WARM [None]
  - RASH PAPULAR [None]
  - SKIN DISCOLOURATION [None]
  - OSTEOARTHRITIS [None]
  - ERYTHEMA [None]
  - ILL-DEFINED DISORDER [None]
  - BLISTER [None]
  - SKIN EXFOLIATION [None]
  - ABDOMINAL DISCOMFORT [None]
  - HYPERSENSITIVITY [None]
  - SKIN CANCER [None]
  - RASH ERYTHEMATOUS [None]
  - NAUSEA [None]
  - OEDEMA PERIPHERAL [None]
  - CELLULITIS [None]
  - THROAT IRRITATION [None]
  - ADHESION [None]
